FAERS Safety Report 5302275-3 (Version None)
Quarter: 2007Q2

REPORT INFORMATION
  Report Type: 
  Country: None (occurrence: None)
  Receive Date: 20070412
  Receipt Date: 20070327
  Transmission Date: 20071010
  Serious: Yes (Other)
  Sender: FDA-Public Use
  Company Number: 8022994

PATIENT
  Age: 7 Year
  Sex: Female
  Weight: 25 kg

DRUGS (1)
  1. KEPPRA [Suspect]
     Indication: PARTIAL SEIZURES
     Dosage: 7 ML PO
     Route: 048

REACTIONS (4)
  - CONTUSION [None]
  - LEUKOPENIA [None]
  - THROMBOCYTOPENIA [None]
  - VIRAL INFECTION [None]
